FAERS Safety Report 12318272 (Version 2)
Quarter: 2017Q1

REPORT INFORMATION
  Report Type: Report from Study
  Country: US (occurrence: US)
  Receive Date: 20160429
  Receipt Date: 20170306
  Transmission Date: 20170428
  Serious: Yes (Hospitalization)
  Sender: FDA-Public Use
  Company Number: US-ACTELION-A-US2016-135065

PATIENT
  Age: 66 Year
  Sex: Female
  Weight: 111.11 kg

DRUGS (1)
  1. OPSUMIT [Suspect]
     Active Substance: MACITENTAN
     Indication: PULMONARY ARTERIAL HYPERTENSION
     Dosage: 10 MG, QD
     Route: 048
     Dates: start: 20150901

REACTIONS (4)
  - Pulmonary arterial pressure increased [Unknown]
  - Ulcer haemorrhage [Unknown]
  - Fluid retention [Unknown]
  - Pericardial effusion [Unknown]
